FAERS Safety Report 18754768 (Version 3)
Quarter: 2021Q1

REPORT INFORMATION
  Report Type: Spontaneous
  Country: US (occurrence: US)
  Receive Date: 20210119
  Receipt Date: 20210302
  Transmission Date: 20210419
  Serious: Yes (Hospitalization, Other)
  Sender: FDA-Public Use
  Company Number: US-ASTRAZENECA-2021A004935

PATIENT
  Age: 75 Year
  Sex: Female
  Weight: 62.6 kg

DRUGS (3)
  1. METOPROLOL. [Suspect]
     Active Substance: METOPROLOL
     Route: 048
  2. BUDESONIDE AND FORMOTEROL [Suspect]
     Active Substance: BUDESONIDE\FORMOTEROL
     Indication: PNEUMONITIS
     Dosage: 160/4.5 MCG TWO RESPIRATORY INHALATIONS, TWO TIMES A DAY GENERIC
     Route: 055
     Dates: start: 202011
  3. XANAX [Concomitant]
     Active Substance: ALPRAZOLAM
     Indication: SLEEP DISORDER
     Route: 048

REACTIONS (7)
  - Pleural effusion [Recovered/Resolved]
  - COVID-19 [Recovering/Resolving]
  - Device malfunction [Unknown]
  - Bronchitis [Unknown]
  - Dyspnoea exertional [Unknown]
  - Incorrect dose administered by device [Unknown]
  - Pneumonia [Unknown]

NARRATIVE: CASE EVENT DATE: 2020
